FAERS Safety Report 8739310 (Version 4)
Quarter: 2013Q1

REPORT INFORMATION
  Report Type: Spontaneous
  Country: US (occurrence: US)
  Receive Date: 20120823
  Receipt Date: 20130124
  Transmission Date: 20140127
  Serious: Yes (Hospitalization, Disabling)
  Sender: FDA-Public Use
  Company Number: US-009507513-1208USA006840

PATIENT
  Age: 61 None
  Sex: Male

DRUGS (3)
  1. TICE BCG LIVE [Suspect]
     Indication: BLADDER CANCER
     Dosage: UNK
     Route: 043
     Dates: start: 20111215, end: 20120119
  2. TICE BCG LIVE [Suspect]
     Dosage: UNK
     Route: 043
     Dates: start: 20120712, end: 20120808
  3. CRESTOR [Concomitant]

REACTIONS (3)
  - Bladder cancer recurrent [Not Recovered/Not Resolved]
  - Arthralgia [Recovering/Resolving]
  - Pyrexia [Recovered/Resolved]
